FAERS Safety Report 6134641-0 (Version None)
Quarter: 2009Q1

REPORT INFORMATION
  Report Type: 
  Country: None (occurrence: None)
  Receive Date: 20090327
  Receipt Date: 20090320
  Transmission Date: 20090719
  Serious: Yes (Disabling)
  Sender: FDA-Public Use
  Company Number: PHHY2009IT10636

PATIENT
  Sex: Female

DRUGS (1)
  1. ZOMETA [Suspect]
     Indication: BREAST CANCER METASTATIC
     Dosage: 4 MG, QMO
     Route: 042
     Dates: start: 20070127

REACTIONS (5)
  - BONE DISORDER [None]
  - OSTEONECROSIS [None]
  - TOOTH AVULSION [None]
  - TOOTH EXTRACTION [None]
  - TOOTHACHE [None]
